FAERS Safety Report 7981760-X (Version None)
Quarter: 2011Q4

REPORT INFORMATION
  Report Type: 
  Country: None (occurrence: None)
  Receive Date: 20111215
  Receipt Date: 20111130
  Transmission Date: 20120403
  Serious: Yes (Hospitalization)
  Sender: FDA-Public Use
  Company Number: JP-SANOFI-AVENTIS-2011SA079979

PATIENT
  Age: 81 Year
  Sex: Male
  Weight: 61 kg

DRUGS (8)
  1. PLAVIX [Suspect]
     Route: 065
     Dates: start: 20081007
  2. HEPARIN [Concomitant]
     Dosage: DOSE:1000 UNIT(S)
     Route: 042
     Dates: start: 20081007, end: 20081007
  3. SIGMART [Concomitant]
     Route: 048
     Dates: start: 20081008
  4. DILTIAZEM [Concomitant]
     Dates: start: 20081008
  5. ASPIRIN [Concomitant]
     Route: 048
     Dates: start: 20081007, end: 20081007
  6. RABEPRAZOLE SODIUM [Concomitant]
     Route: 048
     Dates: start: 20081008
  7. ISOSORBIDE DINITRATE [Concomitant]
     Dates: start: 20081008
  8. ASPIRIN [Concomitant]
     Route: 048
     Dates: start: 20081008

REACTIONS (1)
  - AORTIC ANEURYSM [None]
